FAERS Safety Report 7234143-4 (Version None)
Quarter: 2011Q1

REPORT INFORMATION
  Report Type: 
  Country: None (occurrence: None)
  Receive Date: 20110119
  Receipt Date: 20110111
  Transmission Date: 20110831
  Serious: Yes (Other)
  Sender: FDA-Public Use
  Company Number: CA-JNJFOC-20101101897

PATIENT
  Sex: Female
  Weight: 48 kg

DRUGS (14)
  1. AZATHIOPRINE [Concomitant]
  2. WELLBUTRIN XL [Concomitant]
  3. TYLENOL W/ CODEINE NO. 3 [Concomitant]
  4. VITAMIN B-12 [Concomitant]
  5. RAMIPRIL [Concomitant]
  6. TRAZODONE [Concomitant]
  7. MIRTAZAPINE [Concomitant]
  8. CALCIUM [Concomitant]
  9. REMICADE [Suspect]
     Route: 042
  10. LORAZEPAM [Concomitant]
  11. BENADRYL [Concomitant]
  12. VITAMIN B [Concomitant]
  13. REMICADE [Suspect]
     Indication: CROHN'S DISEASE
     Route: 042
  14. HYDROCORTISONE [Concomitant]

REACTIONS (5)
  - EXCORIATION [None]
  - SQUAMOUS CELL CARCINOMA [None]
  - SURGERY [None]
  - IMMOBILE [None]
  - SKIN LESION [None]
